FAERS Safety Report 19420031 (Version 4)
Quarter: 2023Q1

REPORT INFORMATION
  Report Type: Spontaneous
  Country: GB (occurrence: GB)
  Receive Date: 20210615
  Receipt Date: 20230126
  Transmission Date: 20230418
  Serious: Yes (Other)
  Sender: FDA-Public Use
  Company Number: GB-SA-SAC20210604000548

PATIENT
  Age: 73 Year
  Sex: Female
  Weight: 50.2 kg

DRUGS (31)
  1. OMEPRAZOLE [Suspect]
     Active Substance: OMEPRAZOLE
     Indication: Product used for unknown indication
     Dosage: 20 MILLIGRAM, QD
     Route: 048
  2. SODIUM CHLORIDE [Suspect]
     Active Substance: SODIUM CHLORIDE
     Indication: Medication dilution
     Dosage: UNK
     Route: 042
     Dates: start: 20171110, end: 20171114
  3. SODIUM CHLORIDE [Suspect]
     Active Substance: SODIUM CHLORIDE
     Dosage: UNK (STOP DATE: NOV-2017)
     Route: 042
     Dates: start: 20171107, end: 201711
  4. SODIUM CHLORIDE [Suspect]
     Active Substance: SODIUM CHLORIDE
     Dosage: UNK
     Route: 042
     Dates: start: 20171103, end: 20171106
  5. ALLOPURINOL [Suspect]
     Active Substance: ALLOPURINOL
     Indication: Product used for unknown indication
     Dosage: 30 MILLIGRAM, QD
     Route: 065
     Dates: start: 20171104, end: 20171120
  6. ALLOPURINOL [Suspect]
     Active Substance: ALLOPURINOL
     Dosage: 300 MILLIGRAM, QD (THERAPY IS ONGOING)
     Route: 065
     Dates: start: 20171120
  7. ALLOPURINOL [Suspect]
     Active Substance: ALLOPURINOL
     Dosage: 30 MILLIGRAM, QD
     Route: 065
  8. ALLOPURINOL [Suspect]
     Active Substance: ALLOPURINOL
     Dosage: 300 MILLIGRAM, QD
     Route: 065
  9. DEXAMETHASONE [Suspect]
     Active Substance: DEXAMETHASONE
     Indication: Product used for unknown indication
     Dosage: 20 MILLIGRAM, QD
     Route: 065
     Dates: start: 20171102, end: 20171106
  10. DEXAMETHASONE [Suspect]
     Active Substance: DEXAMETHASONE
     Dosage: 20 MILLIGRAM
     Route: 065
  11. FENTANYL [Suspect]
     Active Substance: FENTANYL
     Indication: Product used for unknown indication
     Dosage: UNK (THERAPY ONGOING: YES)
     Route: 065
     Dates: start: 20171108
  12. FENTANYL [Suspect]
     Active Substance: FENTANYL
     Dosage: 12 MILLIGRAM, QH
     Route: 062
     Dates: start: 20171108
  13. FENTANYL [Suspect]
     Active Substance: FENTANYL
     Dosage: 12 MICROGRAM, 12 UG (12 UG/INHAL UNK
     Route: 055
  14. RAMIPRIL [Suspect]
     Active Substance: RAMIPRIL
     Indication: Product used for unknown indication
     Dosage: 10 MILLIGRAM, QD
     Route: 065
  15. RAMIPRIL [Suspect]
     Active Substance: RAMIPRIL
     Dosage: 10 MILLIGRAM, AM
     Route: 065
  16. SERTRALINE [Suspect]
     Active Substance: SERTRALINE HYDROCHLORIDE
     Indication: Product used for unknown indication
     Dosage: 50 MILLIGRAM, QD
     Route: 065
  17. METOCLOPRAMIDE [Suspect]
     Active Substance: METOCLOPRAMIDE
     Indication: Product used for unknown indication
     Dosage: 10 MILLIGRAM, PRN, AS NECESSARY
     Route: 065
  18. BENDROFLUMETHIAZIDE [Suspect]
     Active Substance: BENDROFLUMETHIAZIDE
     Indication: Product used for unknown indication
     Dosage: 2.5 MILLIGRAM, QD
     Route: 065
  19. BORTEZOMIB [Suspect]
     Active Substance: BORTEZOMIB
     Indication: Plasma cell leukaemia
     Dosage: 1.8 MILLIGRAM
     Route: 058
     Dates: start: 20171103, end: 20171103
  20. BORTEZOMIB [Suspect]
     Active Substance: BORTEZOMIB
     Dosage: 1.8 MILLIGRAM (STOP DATE: NOV-2017)
     Route: 058
     Dates: start: 20171107, end: 201711
  21. BORTEZOMIB [Suspect]
     Active Substance: BORTEZOMIB
     Dosage: 1.8 MILLIGRAM
     Route: 058
     Dates: start: 20171110, end: 20171114
  22. BORTEZOMIB [Suspect]
     Active Substance: BORTEZOMIB
     Dosage: 1.8 MILLIGRAM/SQ. METER
     Route: 065
  23. BORTEZOMIB [Suspect]
     Active Substance: BORTEZOMIB
     Dosage: 1.3 MILLIGRAM/SQ. METER, QD
     Route: 065
  24. BORTEZOMIB [Suspect]
     Active Substance: BORTEZOMIB
     Dosage: 1.8 MILLIGRAM/SQ. METER
     Route: 065
  25. BORTEZOMIB [Suspect]
     Active Substance: BORTEZOMIB
     Dosage: 1.3 MILLIGRAM/SQ. METER CYCLE
     Route: 065
  26. BORTEZOMIB [Suspect]
     Active Substance: BORTEZOMIB
     Dosage: 1.8 MG/M
     Route: 065
  27. MELPHALAN [Suspect]
     Active Substance: MELPHALAN
     Indication: Plasma cell leukaemia
     Dosage: 14 MILLIGRAM, QD
     Route: 065
     Dates: start: 20171103, end: 20171103
  28. MELPHALAN [Suspect]
     Active Substance: MELPHALAN
     Dosage: 14 MILLIGRAM, QD
     Route: 065
     Dates: start: 20171107, end: 20171110
  29. PREDNISONE [Suspect]
     Active Substance: PREDNISONE
     Indication: Plasma cell leukaemia
     Dosage: 70 MILLIGRAM, QD
     Route: 065
     Dates: start: 20171103, end: 20171103
  30. PREDNISONE [Suspect]
     Active Substance: PREDNISONE
     Dosage: 70 MILLIGRAM, QD
     Route: 065
     Dates: start: 20171106, end: 20171106
  31. PREDNISONE [Suspect]
     Active Substance: PREDNISONE
     Dosage: 70 MILLIGRAM, QD CYCLE
     Route: 065
     Dates: start: 20171103, end: 20171103

REACTIONS (13)
  - Disorientation [Recovered/Resolved]
  - Hallucination [Recovered/Resolved]
  - Disturbance in social behaviour [Recovered/Resolved]
  - Emotional distress [Not Recovered/Not Resolved]
  - Confusional state [Not Recovered/Not Resolved]
  - Agitation [Not Recovered/Not Resolved]
  - Abnormal behaviour [Not Recovered/Not Resolved]
  - Paranoia [Not Recovered/Not Resolved]
  - Off label use [Unknown]
  - Product use in unapproved indication [Unknown]
  - Drug abuse [Unknown]
  - Medication error [Unknown]
  - Intentional product misuse [Unknown]

NARRATIVE: CASE EVENT DATE: 20171107
